FAERS Safety Report 11865607 (Version 1)
Quarter: 2015Q4

REPORT INFORMATION
  Report Type: Not Available
  Country: DE (occurrence: DE)
  Receive Date: 20151223
  Receipt Date: 20151223
  Transmission Date: 20160305
  Serious: Yes (Other)
  Sender: FDA-Public Use
  Company Number: DE-ANIPHARMA-2015-DE-000003

PATIENT
  Age: 62 Year
  Sex: Female
  Weight: 68 kg

DRUGS (1)
  1. FLUVOXAMINE MALEATE 50 MG TABLETS [Suspect]
     Active Substance: FLUVOXAMINE MALEATE
     Dosage: 50 MG
     Route: 048
     Dates: start: 20140508, end: 20140711

REACTIONS (1)
  - Condition aggravated [Unknown]
